FAERS Safety Report 18258809 (Version 9)
Quarter: 2021Q1

REPORT INFORMATION
  Report Type: Report from Study
  Country: CA (occurrence: CA)
  Receive Date: 20200911
  Receipt Date: 20210223
  Transmission Date: 20210419
  Serious: Yes (Other)
  Sender: FDA-Public Use
  Company Number: CA-NALPROPION PHARMACEUTICALS INC.-2020-010843

PATIENT

DRUGS (11)
  1. CONTRAVE [Suspect]
     Active Substance: BUPROPION HYDROCHLORIDE\NALTREXONE HYDROCHLORIDE
     Dosage: 90/8 MG, STARTED APPROXIMATELY ON 01/OCT/2020 (2 DOSAGE FORMS,1 IN 12 HR)
     Route: 048
     Dates: start: 202010, end: 2020
  2. AMLODIPINE [Concomitant]
     Active Substance: AMLODIPINE BESYLATE
     Indication: HYPERTENSION
     Dosage: STARTED YEARS AND YEARS AGO
     Route: 048
  3. CONTRAVE [Suspect]
     Active Substance: BUPROPION HYDROCHLORIDE\NALTREXONE HYDROCHLORIDE
     Dosage: 90/8 MG, 2 TABLET MORNING AND 2 TABLET IN EVENING (2 DOSAGE FORMS,1 IN 12 HR)
     Route: 048
     Dates: start: 20200816, end: 2020
  4. CONTRAVE [Suspect]
     Active Substance: BUPROPION HYDROCHLORIDE\NALTREXONE HYDROCHLORIDE
     Dosage: 90/8 MG, 1 TABLET MORNING AND 1 TABLET IN EVENING (1 DOSAGE FORMS,1 IN 12 HR)
     Route: 048
     Dates: start: 20200802, end: 20200808
  5. CONTRAVE [Suspect]
     Active Substance: BUPROPION HYDROCHLORIDE\NALTREXONE HYDROCHLORIDE
     Dosage: 90/8 MG, 2 TABLET MORNING AND 1 TABLET IN EVENING (1 IN12 HR)
     Route: 048
     Dates: start: 20200809, end: 20200815
  6. CONTRAVE [Suspect]
     Active Substance: BUPROPION HYDROCHLORIDE\NALTREXONE HYDROCHLORIDE
     Dosage: 90/8 MG 2 TABLETS IN THE MORNING AND 1 TABLET IN THE EVENING (1 IN 12 HR)
     Route: 048
     Dates: start: 20200930, end: 2020
  7. CONTRAVE [Suspect]
     Active Substance: BUPROPION HYDROCHLORIDE\NALTREXONE HYDROCHLORIDE
     Dosage: 90/8 MG
     Route: 048
     Dates: start: 2020, end: 2020
  8. CONTRAVE [Suspect]
     Active Substance: BUPROPION HYDROCHLORIDE\NALTREXONE HYDROCHLORIDE
     Dosage: 90/8 MG STOPPED ON 05/JAN/2021 APPROX (1 DOSAGE FORMS,1 IN 12 HR)
     Route: 048
     Dates: start: 202012, end: 202101
  9. VENLAFAXIN [Concomitant]
     Active Substance: VENLAFAXINE HYDROCHLORIDE
     Indication: HOT FLUSH
  10. CONTRAVE [Suspect]
     Active Substance: BUPROPION HYDROCHLORIDE\NALTREXONE HYDROCHLORIDE
     Indication: WEIGHT CONTROL
     Dosage: 90/8 MG, 1 TABLET IN MORNING
     Route: 048
     Dates: start: 20200726, end: 20200801
  11. VENLAFAXIN [Concomitant]
     Active Substance: VENLAFAXINE HYDROCHLORIDE
     Indication: ANXIETY
     Dosage: 37.5 MG
     Dates: start: 201709

REACTIONS (16)
  - Migraine [Not Recovered/Not Resolved]
  - Stress [Not Recovered/Not Resolved]
  - Therapy interrupted [Unknown]
  - Joint dislocation [Recovered/Resolved]
  - Bone contusion [Recovered/Resolved]
  - Drug titration error [Unknown]
  - Hot flush [Not Recovered/Not Resolved]
  - Muscle strain [Unknown]
  - Dry mouth [Recovered/Resolved]
  - Inability to afford medication [Unknown]
  - Ocular hypertension [Not Recovered/Not Resolved]
  - Abdominal pain [Recovered/Resolved]
  - Chorioretinopathy [Not Recovered/Not Resolved]
  - Pain in extremity [Not Recovered/Not Resolved]
  - Nocturia [Not Recovered/Not Resolved]
  - Constipation [Recovered/Resolved]

NARRATIVE: CASE EVENT DATE: 2020
